FAERS Safety Report 5694362-5 (Version None)
Quarter: 2008Q2

REPORT INFORMATION
  Report Type: 
  Country: None (occurrence: None)
  Receive Date: 20080404
  Receipt Date: 20080328
  Transmission Date: 20081010
  Serious: Yes (Disabling)
  Sender: FDA-Public Use
  Company Number: CA-ASTRAZENECA-2008UW06131

PATIENT
  Age: 36 Year
  Sex: Female
  Weight: 95.5 kg

DRUGS (1)
  1. SEROQUEL [Suspect]
     Route: 048

REACTIONS (3)
  - ARTHRALGIA [None]
  - FLUID RETENTION [None]
  - MYALGIA [None]
